FAERS Safety Report 8145612-7 (Version None)
Quarter: 2012Q1

REPORT INFORMATION
  Report Type: 
  Country: None (occurrence: None)
  Receive Date: 20120217
  Receipt Date: 20110420
  Transmission Date: 20120608
  Serious: No
  Sender: FDA-Public Use
  Company Number: US-ABBOTT-11P-163-0720569-00

PATIENT
  Sex: Female

DRUGS (4)
  1. UNKNOWN MEDICATIONS [Concomitant]
     Indication: PRODUCT USED FOR UNKNOWN INDICATION
  2. SIMCOR [Suspect]
     Indication: PRODUCT USED FOR UNKNOWN INDICATION
     Dosage: 500/40MG AT BEDTIME
     Dates: start: 20110401
  3. METOPROLOL TARTRATE [Concomitant]
     Indication: PRODUCT USED FOR UNKNOWN INDICATION
  4. STEROID [Concomitant]
     Indication: PRODUCT USED FOR UNKNOWN INDICATION
     Route: 008

REACTIONS (7)
  - FLUSHING [None]
  - NERVOUSNESS [None]
  - BLOOD PRESSURE DECREASED [None]
  - BACK PAIN [None]
  - FEELING HOT [None]
  - PARAESTHESIA [None]
  - DIZZINESS [None]
